FAERS Safety Report 9201652 (Version 1)
Quarter: 2013Q1

REPORT INFORMATION
  Report Type: Spontaneous
  Country: US (occurrence: None)
  Receive Date: 20130327
  Receipt Date: 20130327
  Transmission Date: 20140127
  Serious: Yes (Other)
  Sender: FDA-Public Use
  Company Number: MERCK1301GBR005653

PATIENT
  Age: 94 Year
  Sex: Male

DRUGS (2)
  1. BCG LIVE [Suspect]
     Dosage: INTRAVESICAL
  2. HORMONES (UNSPECIFIED) [Concomitant]

REACTIONS (6)
  - Aortic aneurysm [None]
  - Osteomyelitis [None]
  - Intervertebral discitis [None]
  - Normochromic normocytic anaemia [None]
  - Mycotic aneurysm [None]
  - Bovine tuberculosis [None]
